FAERS Safety Report 23293155 (Version 2)
Quarter: 2024Q1

REPORT INFORMATION
  Report Type: Spontaneous
  Country: MX (occurrence: MX)
  Receive Date: 20231213
  Receipt Date: 20240118
  Transmission Date: 20240410
  Serious: No
  Sender: FDA-Public Use
  Company Number: MX-BAYER-2023A178981

PATIENT
  Age: 56 Year
  Sex: Male

DRUGS (2)
  1. NEXAVAR [Suspect]
     Active Substance: SORAFENIB
     Indication: Renal cancer
     Dosage: 400 MG, BID
     Route: 048
     Dates: start: 202310
  2. NEXAVAR [Suspect]
     Active Substance: SORAFENIB
     Indication: Renal cancer
     Dosage: 400MG IN MORNING, 200 MG IN NIGHT
     Route: 048
     Dates: start: 202312

REACTIONS (8)
  - Stomatitis [Recovered/Resolved with Sequelae]
  - Pruritus [Recovered/Resolved with Sequelae]
  - Erythema [Recovered/Resolved with Sequelae]
  - Phlebitis [Recovered/Resolved with Sequelae]
  - Feeling hot [Recovered/Resolved with Sequelae]
  - Epistaxis [Recovered/Resolved with Sequelae]
  - Gingival bleeding [Recovered/Resolved with Sequelae]
  - Cheilitis [Recovered/Resolved with Sequelae]

NARRATIVE: CASE EVENT DATE: 20231101
